FAERS Safety Report 4702519-2 (Version None)
Quarter: 2005Q2

REPORT INFORMATION
  Report Type: 
  Country: None (occurrence: None)
  Receive Date: 20050624
  Receipt Date: 20050303
  Transmission Date: 20051028
  Serious: No
  Sender: FDA-Public Use
  Company Number: 2005BI004983

PATIENT
  Age: 49 Year
  Sex: Female
  Weight: 66.6788 kg

DRUGS (1)
  1. NATALIZUMAB [Suspect]
     Indication: MULTIPLE SCLEROSIS
     Dosage: 300 MG; QM; IV
     Route: 042
     Dates: start: 20050215

REACTIONS (7)
  - ANIMAL BITE [None]
  - AURA [None]
  - BLOOD PRESSURE INCREASED [None]
  - EAR PAIN [None]
  - HEADACHE [None]
  - HEART RATE INCREASED [None]
  - PHOTOPHOBIA [None]
